FAERS Safety Report 24791747 (Version 3)
Quarter: 2025Q1

REPORT INFORMATION
  Report Type: Spontaneous
  Country: US (occurrence: US)
  Receive Date: 20241231
  Receipt Date: 20250318
  Transmission Date: 20250409
  Serious: No
  Sender: BIOVITRUM
  Company Number: US-BIOVITRUM-2024-US-014921

PATIENT
  Age: 71 Year
  Sex: Male

DRUGS (13)
  1. VONJO [Suspect]
     Active Substance: PACRITINIB
     Indication: Myelofibrosis
     Route: 048
     Dates: start: 202405
  2. EZETIMIBE [Concomitant]
     Active Substance: EZETIMIBE
     Indication: Product used for unknown indication
  3. LIVALO [Concomitant]
     Active Substance: PITAVASTATIN CALCIUM
     Indication: Product used for unknown indication
  4. CHONDROITIN SULFATE A\GLUCOSAMINE [Concomitant]
     Active Substance: CHONDROITIN SULFATE A\GLUCOSAMINE
     Indication: Product used for unknown indication
  5. DAILY MULTIPLE VITAMINS [Concomitant]
     Indication: Product used for unknown indication
  6. LISINOPRIL [Concomitant]
     Active Substance: LISINOPRIL
     Indication: Product used for unknown indication
  7. FIBER LAXATIVE [Concomitant]
     Indication: Product used for unknown indication
  8. VITAMIN B12 [Concomitant]
     Active Substance: CYANOCOBALAMIN
     Indication: Product used for unknown indication
  9. CVS VITAMIN C [Concomitant]
     Indication: Product used for unknown indication
  10. CVS VITAMIN E [Concomitant]
     Indication: Product used for unknown indication
  11. COLD HEAD CONGESTION DAYTIME TABS, TYLENOL [Concomitant]
     Indication: Product used for unknown indication
  12. VICKS NYQUIL SEVERE COLD/FLU LIQUID [Concomitant]
     Indication: Product used for unknown indication
  13. TYLENOL EXTRA STRENGTH [Concomitant]
     Active Substance: ACETAMINOPHEN
     Indication: Product used for unknown indication

REACTIONS (7)
  - Haemoglobin decreased [Unknown]
  - Platelet count decreased [Unknown]
  - Off label use [Recovered/Resolved]
  - COVID-19 [Unknown]
  - Gastroenteritis viral [Unknown]
  - Intentional dose omission [Unknown]
  - White blood cell count decreased [Unknown]

NARRATIVE: CASE EVENT DATE: 20240501
